FAERS Safety Report 9474278 (Version 2)
Quarter: 2013Q3

REPORT INFORMATION
  Report Type: Report from Study
  Country: IN (occurrence: IN)
  Receive Date: 20130823
  Receipt Date: 20130827
  Transmission Date: 20140515
  Serious: Yes (Death, Hospitalization)
  Sender: FDA-Public Use
  Company Number: PHHY2013IN089997

PATIENT
  Age: 50 Year
  Sex: Male
  Weight: 61 kg

DRUGS (2)
  1. MYCOPHENOLIC ACID [Suspect]
     Indication: IMMUNOSUPPRESSION
     Dosage: 720 MG, UNK
     Dates: start: 20130319, end: 20130516
  2. TACROLIMUS [Suspect]
     Indication: IMMUNOSUPPRESSION
     Dosage: 4.5 MG, (2.5 MG MORNING+2MG EVENING)
     Route: 048
     Dates: start: 20130319, end: 20130516

REACTIONS (1)
  - Haemorrhage intracranial [Fatal]
